FAERS Safety Report 14698719 (Version 1)
Quarter: 2018Q1

REPORT INFORMATION
  Report Type: Report from Study
  Country: None (occurrence: US)
  Receive Date: 20180330
  Receipt Date: 20180330
  Transmission Date: 20180509
  Serious: Yes (Other)
  Sender: FDA-Public Use
  Company Number: US-ABBVIE-17K-163-2071236-00

PATIENT
  Age: 28 Year
  Sex: Female

DRUGS (4)
  1. PRENATAL VITAMINS [Concomitant]
     Active Substance: VITAMINS
     Indication: PRODUCT USED FOR UNKNOWN INDICATION
  2. PITOCIN [Concomitant]
     Active Substance: OXYTOCIN
     Indication: LABOUR INDUCTION
     Dates: start: 20170705, end: 20170705
  3. HUMIRA [Suspect]
     Active Substance: ADALIMUMAB
     Indication: CROHN^S DISEASE
     Dosage: LOADING DOSE
     Route: 058
     Dates: start: 201407, end: 201407
  4. HUMIRA [Suspect]
     Active Substance: ADALIMUMAB
     Route: 058
     Dates: start: 2014

REACTIONS (8)
  - Crohn^s disease [Not Recovered/Not Resolved]
  - Live birth [Unknown]
  - Vomiting in pregnancy [Recovered/Resolved]
  - Device issue [Unknown]
  - Infertility female [Not Recovered/Not Resolved]
  - Exposure during pregnancy [Unknown]
  - Drug dose omission [Unknown]
  - Induced labour [Unknown]

NARRATIVE: CASE EVENT DATE: 20170705
